FAERS Safety Report 4463364-9 (Version None)
Quarter: 2004Q3

REPORT INFORMATION
  Report Type: 
  Country: None (occurrence: None)
  Receive Date: 20040928
  Receipt Date: 20040916
  Transmission Date: 20050211
  Serious: Yes (Death, Life-Threatening)
  Sender: FDA-Public Use
  Company Number: 2004233311FR

PATIENT
  Age: 11 Year
  Sex: Female
  Weight: 33.5 kg

DRUGS (1)
  1. GENOTROPIN [Suspect]
     Indication: PRADER-WILLI SYNDROME
     Dosage: 7.7 MG, WEEKLY, SUBCUTANEOUS
     Route: 058
     Dates: start: 20021025

REACTIONS (3)
  - ABNORMAL BEHAVIOUR [None]
  - EUPHORIC MOOD [None]
  - LOSS OF CONSCIOUSNESS [None]
